FAERS Safety Report 21407343 (Version 2)
Quarter: 2022Q4

REPORT INFORMATION
  Report Type: Report from Study
  Country: CO (occurrence: CO)
  Receive Date: 20221004
  Receipt Date: 20221019
  Transmission Date: 20230112
  Serious: No
  Sender: FDA-Public Use
  Company Number: CO-NOVARTISPH-NVSC2022CO221781

PATIENT
  Sex: Female

DRUGS (1)
  1. TASIGNA [Suspect]
     Active Substance: NILOTINIB
     Indication: Chronic myeloid leukaemia
     Dosage: 400 MG, Q12H
     Route: 048
     Dates: start: 20160326

REACTIONS (8)
  - Sinusitis [Unknown]
  - Nasal congestion [Unknown]
  - Pain [Unknown]
  - Rhinitis [Unknown]
  - Rhinorrhoea [Unknown]
  - Dry skin [Unknown]
  - Influenza [Unknown]
  - Malaise [Unknown]
